FAERS Safety Report 8283249-X (Version None)
Quarter: 2012Q2

REPORT INFORMATION
  Report Type: 
  Country: None (occurrence: None)
  Receive Date: 20120413
  Receipt Date: 20120403
  Transmission Date: 20120825
  Serious: No
  Sender: FDA-Public Use
  Company Number: US-B.I. PHARMACEUTICALS,INC./RIDGEFIELD-2012-BP-06248BP

PATIENT
  Sex: Male

DRUGS (19)
  1. DESIPRAMINE HYDROCHLORIDE [Concomitant]
     Indication: DEPRESSION
     Route: 048
  2. FLOMAX [Concomitant]
     Indication: URINARY RETENTION
     Dosage: 0.4 MG
     Route: 048
  3. PROAIR HFA [Concomitant]
     Indication: PNEUMONIA LIPOID
     Route: 055
  4. NUVIGIL [Concomitant]
     Indication: DEPRESSED LEVEL OF CONSCIOUSNESS
     Dosage: 250 MG
     Route: 048
  5. ADVAIR DISKUS 100/50 [Concomitant]
     Indication: PNEUMONIA LIPOID
     Route: 055
  6. IRON [Concomitant]
     Indication: SUPPLEMENTATION THERAPY
  7. NEURONTIN [Concomitant]
     Indication: CONVULSION
     Dosage: 900 MG
     Route: 048
  8. NIASPAN [Concomitant]
     Indication: BLOOD TRIGLYCERIDES INCREASED
  9. ALBUTEROL [Concomitant]
     Indication: PNEUMONIA LIPOID
     Route: 055
  10. MULTI-VITAMIN [Concomitant]
     Indication: SUPPLEMENTATION THERAPY
  11. OXANDROLONE [Concomitant]
     Indication: MUSCLE ATROPHY
     Dosage: 20 MG
     Route: 048
  12. SPIRIVA [Suspect]
     Dosage: 18 MCG
     Route: 055
     Dates: start: 20090101
  13. GINKO BILOBA [Concomitant]
     Indication: SUPPLEMENTATION THERAPY
  14. KLONOPIN [Concomitant]
     Indication: CONVULSION
     Dosage: 3 MG
     Route: 048
  15. LAMICTAL [Concomitant]
     Indication: CONVULSION
     Dosage: 300 MG
     Route: 048
  16. ASPIRIN [Concomitant]
     Indication: CARDIAC DISORDER
     Dosage: 325 MG
     Route: 048
  17. NUEDEXTA [Suspect]
     Indication: DEPRESSION
     Route: 048
  18. VITAMIN D [Concomitant]
     Indication: SUPPLEMENTATION THERAPY
  19. ZONEGRAN [Concomitant]
     Indication: CONVULSION
     Dosage: 200 MG
     Route: 048

REACTIONS (3)
  - URINARY RETENTION [None]
  - PNEUMONIA LIPOID [None]
  - WEIGHT DECREASED [None]
